FAERS Safety Report 19147166 (Version 1)
Quarter: 2021Q2

REPORT INFORMATION
  Report Type: Spontaneous
  Country: US (occurrence: US)
  Receive Date: 20210416
  Receipt Date: 20210416
  Transmission Date: 20210717
  Serious: Yes (Disabling, Other)
  Sender: FDA-Public Use
  Company Number: US-ALLERGAN-2115238US

PATIENT
  Sex: Female

DRUGS (20)
  1. BIOTIN [Concomitant]
     Active Substance: BIOTIN
  2. ROBAXIN [Concomitant]
     Active Substance: METHOCARBAMOL
  3. UBRELVY [Concomitant]
     Active Substance: UBROGEPANT
  4. DEPAKOTE [Suspect]
     Active Substance: DIVALPROEX SODIUM
     Indication: MIGRAINE
     Dosage: 250 MG, TID
     Route: 048
  5. AFLURIA NOS [Concomitant]
     Active Substance: INFLUENZA VIRUS VACCINE TRIVALENT TYPE A+B AFLURIA
  6. FIORICET [Concomitant]
     Active Substance: ACETAMINOPHEN\BUTALBITAL\CAFFEINE
     Dosage: INTERMITTENTELY
  7. MELATONIN [Concomitant]
     Active Substance: MELATONIN
  8. ULTRAM [Concomitant]
     Active Substance: TRAMADOL HYDROCHLORIDE
  9. BECLOMETHASONE [Concomitant]
     Active Substance: BECLOMETHASONE
  10. BOTOX [Suspect]
     Active Substance: ONABOTULINUMTOXINA
     Indication: MIGRAINE WITHOUT AURA
     Dosage: UNK, SINGLE
     Dates: start: 20200825, end: 20200825
  11. EPIPEN [Concomitant]
     Active Substance: EPINEPHRINE
  12. MACRODANTIN [Concomitant]
     Active Substance: NITROFURANTOIN
  13. ZANTAC [Concomitant]
     Active Substance: RANITIDINE HYDROCHLORIDE
  14. KENALOG [Concomitant]
     Active Substance: TRIAMCINOLONE ACETONIDE
  15. VENTOLIN HFA [Concomitant]
     Active Substance: ALBUTEROL SULFATE
  16. CURCUMIN [Concomitant]
     Active Substance: CURCUMIN
  17. CLARITIN [Concomitant]
     Active Substance: LORATADINE
  18. RIMEGEPANT. [Concomitant]
     Active Substance: RIMEGEPANT
  19. LIORESAL [Concomitant]
     Active Substance: BACLOFEN
  20. COMBIVENT RESPIMAT [Concomitant]
     Active Substance: ALBUTEROL SULFATE\IPRATROPIUM BROMIDE

REACTIONS (4)
  - Vertebral foraminal stenosis [Unknown]
  - Arnold-Chiari malformation [Unknown]
  - Cervical spinal stenosis [Unknown]
  - Therapeutic response unexpected [Unknown]
